FAERS Safety Report 4976127-2 (Version None)
Quarter: 2006Q2

REPORT INFORMATION
  Report Type: 
  Country: None (occurrence: None)
  Receive Date: 20060411
  Receipt Date: 20060403
  Transmission Date: 20061013
  Serious: Yes (Other)
  Sender: FDA-Public Use
  Company Number: 007121

PATIENT
  Sex: Female

DRUGS (5)
  1. MEDROXYPROGESTERONE ACETATE [Suspect]
     Dosage: ORAL
     Route: 048
     Dates: start: 19900101, end: 20020901
  2. PREMARIN [Suspect]
     Dosage: ORAL
     Route: 048
     Dates: start: 19900101, end: 20020901
  3. COMBIPATCH [Suspect]
     Dosage: TRANSDERMAL
     Route: 062
     Dates: start: 19900101, end: 20020901
  4. PREFEST [Suspect]
     Dosage: ORAL
     Route: 048
     Dates: start: 19900101, end: 20020901
  5. PROMETRIUM [Suspect]
     Dosage: ORAL
     Route: 048
     Dates: start: 19900101, end: 20020901

REACTIONS (1)
  - BREAST CANCER FEMALE [None]
